FAERS Safety Report 21189400 (Version 1)
Quarter: 2022Q3

REPORT INFORMATION
  Report Type: Spontaneous
  Country: NL (occurrence: NL)
  Receive Date: 20220809
  Receipt Date: 20220809
  Transmission Date: 20221027
  Serious: Yes (Other)
  Sender: FDA-Public Use
  Company Number: None

PATIENT
  Age: 59 Year
  Sex: Male
  Weight: 90 kg

DRUGS (5)
  1. CLOPIDOGREL [Suspect]
     Active Substance: CLOPIDOGREL BISULFATE
     Indication: Cerebral infarction
     Dosage: 75 MILLIGRAM DAILY; 1 X PER DAY 1 PIECE, STRENGTH: 75MG / BRAND NAME NOT SPECIFIED, THERAPY END DATE
     Dates: start: 20220414
  2. ROSUVASTATIN [Concomitant]
     Active Substance: ROSUVASTATIN
     Indication: Product used for unknown indication
     Dosage: STRENGTH: 5MG / BRAND NAME NOT SPECIFIED, THERAPY START DATE AND END DATE : ASKU
  3. CARBOMER [Concomitant]
     Active Substance: CARBOMER
     Indication: Product used for unknown indication
     Dosage: CARBOMEER EYE GEL 2MG/G (CARBOMER 980) / BRAND NAME NOT SPECIFIED, THERAPY START DATE AND END DATE :
  4. HYALURON/CARBOM [Concomitant]
     Indication: Product used for unknown indication
     Dosage: HYALURON/CARBOM EYEDR 0.15/0.15MG/ML (CARB 981) / BRAND NAME NOT SPECIFIED, THERAPY START DATE AND E
  5. DEXAMETHASONE [Concomitant]
     Active Substance: DEXAMETHASONE
     Indication: Product used for unknown indication
     Dosage: DEXAMETHASON CAPSULE 20MG / BRAND NAME NOT SPECIFIED, THERAPY START DATE AND END DATE : ASKU

REACTIONS (2)
  - Thrombocytopenia [Not Recovered/Not Resolved]
  - Neutropenia [Not Recovered/Not Resolved]

NARRATIVE: CASE EVENT DATE: 20220712
